FAERS Safety Report 18078542 (Version 12)
Quarter: 2022Q1

REPORT INFORMATION
  Report Type: Other
  Country: DE (occurrence: None)
  Receive Date: 20200728
  Receipt Date: 20220119
  Transmission Date: 20220424
  Serious: No
  Sender: FDA-Public Use
  Company Number: DE-ROCHE-2135467

PATIENT
  Age: 61 Year
  Sex: Male

DRUGS (15)
  1. OCREVUS [Suspect]
     Active Substance: OCRELIZUMAB
     Indication: Primary progressive multiple sclerosis
     Route: 042
     Dates: start: 20180522
  2. OCREVUS [Suspect]
     Active Substance: OCRELIZUMAB
     Route: 042
     Dates: start: 20181122
  3. OCREVUS [Suspect]
     Active Substance: OCRELIZUMAB
     Route: 042
     Dates: start: 20190522
  4. OCREVUS [Suspect]
     Active Substance: OCRELIZUMAB
     Route: 042
     Dates: start: 20191120
  5. OCREVUS [Suspect]
     Active Substance: OCRELIZUMAB
     Route: 042
     Dates: start: 20201116
  6. OCREVUS [Suspect]
     Active Substance: OCRELIZUMAB
     Route: 042
     Dates: start: 20210517
  7. DALFAMPRIDINE [Concomitant]
     Active Substance: DALFAMPRIDINE
  8. CHOLECALCIFEROL [Concomitant]
     Active Substance: CHOLECALCIFEROL
  9. BISOPROLOL FUMARATE [Concomitant]
     Active Substance: BISOPROLOL FUMARATE
  10. BISOPROLOL FUMARATE\HYDROCHLOROTHIAZIDE [Concomitant]
     Active Substance: BISOPROLOL FUMARATE\HYDROCHLOROTHIAZIDE
  11. TAMSULOSIN [Concomitant]
     Active Substance: TAMSULOSIN
  12. TELMISARTAN [Concomitant]
     Active Substance: TELMISARTAN
  13. ZOPICLONE [Concomitant]
     Active Substance: ZOPICLONE
  14. ATORVASTATIN [Concomitant]
     Active Substance: ATORVASTATIN
  15. COMIRNATY [Concomitant]
     Active Substance: TOZINAMERAN
     Indication: COVID-19 immunisation
     Dates: start: 20210317, end: 20210407

REACTIONS (16)
  - Heart rate increased [Recovered/Resolved]
  - Agitation [Recovered/Resolved]
  - Feeling hot [Recovered/Resolved]
  - Asthenia [Recovered/Resolved]
  - Gait disturbance [Not Recovered/Not Resolved]
  - Cystitis noninfective [Recovered/Resolved]
  - Dyspepsia [Recovered/Resolved]
  - Cognitive disorder [Not Recovered/Not Resolved]
  - Fatigue [Recovered/Resolved]
  - Helicobacter infection [Recovered/Resolved]
  - Cough [Recovered/Resolved]
  - Fatigue [Recovered/Resolved]
  - Feeling hot [Recovered/Resolved]
  - Productive cough [Recovered/Resolved]
  - SARS-CoV-2 antibody test negative [Not Recovered/Not Resolved]
  - Dysphagia [Not Recovered/Not Resolved]

NARRATIVE: CASE EVENT DATE: 20180522
